FAERS Safety Report 12340969 (Version 1)
Quarter: 2016Q2

REPORT INFORMATION
  Report Type: Spontaneous
  Country: PR (occurrence: PR)
  Receive Date: 20160506
  Receipt Date: 20160506
  Transmission Date: 20160815
  Serious: Yes (Other)
  Sender: FDA-Public Use
  Company Number: PR-PFIZER INC-2016244235

PATIENT
  Age: 92 Year
  Sex: Female
  Weight: 71 kg

DRUGS (1)
  1. IBRANCE [Suspect]
     Active Substance: PALBOCICLIB
     Indication: BREAST CANCER FEMALE
     Dosage: 125 MG, DAILY
     Route: 048
     Dates: start: 20160307

REACTIONS (3)
  - Haemoglobin decreased [Unknown]
  - Dizziness [Unknown]
  - Peripheral swelling [Unknown]
